FAERS Safety Report 10141354 (Version 1)
Quarter: 2014Q2

REPORT INFORMATION
  Report Type: Spontaneous
  Country: US (occurrence: US)
  Receive Date: 20140429
  Receipt Date: 20140429
  Transmission Date: 20141212
  Serious: Yes (Other)
  Sender: FDA-Public Use
  Company Number: CHPA2014US005784

PATIENT
  Age: 67 Year
  Sex: Male

DRUGS (10)
  1. PRIVATE LABEL STEP 1 21MG ACCT UNKNOWN [Suspect]
     Dosage: 21 MG, UNK
     Route: 065
     Dates: start: 201303, end: 2013
  2. PRIVATE LABEL STEP 2 14MG ACCT UNKNOWN [Suspect]
     Dosage: 14 MG, UNK
     Route: 062
     Dates: start: 2013, end: 2013
  3. PRIVATE LABEL STEP 2 14MG ACCT UNKNOWN [Suspect]
     Dosage: UNK
  4. PRIVATE LABEL STEP 3 7MG ACCT UNKNOWN [Suspect]
     Dosage: 7 MG, UNK
     Route: 062
     Dates: start: 2013, end: 2013
  5. PRIVATE LABEL STRENGTH UNKNOWN [Suspect]
     Dosage: UNK, UNK
     Route: 062
  6. CVS STEP 1 21MG [Suspect]
     Dosage: 21 MG, QD
     Route: 062
     Dates: end: 2013
  7. LISINOPRIL [Concomitant]
     Dosage: 20 UNK, UNK
  8. LISINOPRIL [Concomitant]
     Dosage: 12.5 UNK, UNK
  9. TESTOSTERONE [Concomitant]
     Dosage: SINCE PAST YEARS
  10. SPIRIVA [Concomitant]
     Dosage: UNK
     Dates: start: 201403

REACTIONS (6)
  - Chronic obstructive pulmonary disease [Recovering/Resolving]
  - Dyspnoea [Recovering/Resolving]
  - Hypertension [Recovering/Resolving]
  - Pruritus [Recovering/Resolving]
  - Weight increased [Not Recovered/Not Resolved]
  - Treatment failure [Unknown]
